FAERS Safety Report 14106320 (Version 1)
Quarter: 2017Q4

REPORT INFORMATION
  Report Type: Spontaneous
  Country: US (occurrence: None)
  Receive Date: 20171018
  Receipt Date: 20171018
  Transmission Date: 20180321
  Serious: No
  Sender: FDA-Public Use
  Company Number: None

PATIENT
  Age: 31 Year

DRUGS (1)
  1. SUBOXONE [Suspect]
     Active Substance: BUPRENORPHINE HYDROCHLORIDE\NALOXONE HYDROCHLORIDE
     Indication: DRUG DEPENDENCE
     Dosage: 16-4MG ONCE DAILY ORAL FILM
     Route: 048
     Dates: start: 201610, end: 20171016

REACTIONS (2)
  - Headache [None]
  - Abdominal pain [None]

NARRATIVE: CASE EVENT DATE: 20171016
